FAERS Safety Report 4910965-7 (Version None)
Quarter: 2006Q1

REPORT INFORMATION
  Report Type: 
  Country: None (occurrence: None)
  Receive Date: 20060214
  Receipt Date: 20060106
  Transmission Date: 20060701
  Serious: Yes (Hospitalization, Disabling)
  Sender: FDA-Public Use
  Company Number: US-MERCK-0601USA00819

PATIENT
  Age: 56 Year
  Sex: Female
  Weight: 83 kg

DRUGS (9)
  1. VIOXX [Suspect]
     Indication: PAIN
     Route: 048
     Dates: start: 20030603, end: 20040810
  2. ATIVAN [Concomitant]
     Route: 065
  3. HYDROXYZINE HYDROCHLORIDE [Concomitant]
     Route: 065
  4. ACETAMINOPHEN AND OXYCODONE HYDROCHLORIDE [Concomitant]
     Route: 065
  5. PREDNISONE [Concomitant]
     Route: 065
  6. DOXYCYCLINE [Concomitant]
     Route: 065
  7. METHOCARBAMOL [Concomitant]
     Route: 065
  8. METFORMIN [Concomitant]
     Route: 065
  9. NEURONTIN [Concomitant]
     Route: 065

REACTIONS (1)
  - CEREBROVASCULAR ACCIDENT [None]
